FAERS Safety Report 19478534 (Version 1)
Quarter: 2021Q2

REPORT INFORMATION
  Report Type: Spontaneous
  Country: FR (occurrence: FR)
  Receive Date: 20210630
  Receipt Date: 20210630
  Transmission Date: 20210717
  Serious: Yes (Hospitalization, Other)
  Sender: FDA-Public Use
  Company Number: FR-PFIZER INC-2021661750

PATIENT
  Age: 51 Year
  Sex: Male
  Weight: 67 kg

DRUGS (21)
  1. PROPOFOL. [Suspect]
     Active Substance: PROPOFOL
     Indication: SEDATION
     Dosage: 0.2 ML/HOUR
     Route: 042
     Dates: start: 20210401, end: 20210521
  2. AMIKACIN. [Suspect]
     Active Substance: AMIKACIN
     Dosage: UNK
     Route: 065
     Dates: start: 20210328, end: 20210330
  3. LANSOPRAZOLE. [Suspect]
     Active Substance: LANSOPRAZOLE
     Indication: PROPHYLAXIS AGAINST GASTROINTESTINAL ULCER
     Dosage: 30 MILLIGRAM, QD
     Route: 048
     Dates: start: 20210403
  4. HEPARINE [HEPARIN] [Suspect]
     Active Substance: HEPARIN SODIUM
     Indication: THROMBOSIS PROPHYLAXIS
     Dosage: 6000 IU, 1X/DAY
     Route: 058
     Dates: start: 20210316, end: 20210414
  5. SUFENTANIL [SUFENTANIL CITRATE] [Suspect]
     Active Substance: SUFENTANIL CITRATE
     Dosage: 0.5 MG
     Route: 042
     Dates: start: 20210401
  6. DAPTOMYCIN. [Suspect]
     Active Substance: DAPTOMYCIN
     Dosage: UNK
     Route: 065
     Dates: start: 20210423, end: 20210424
  7. IMIPENEM [Suspect]
     Active Substance: IMIPENEM
     Indication: ANTIBIOTIC PROPHYLAXIS
     Dosage: 2 GRAM, QD
     Route: 042
     Dates: start: 20210420, end: 20210421
  8. CEFEPIME HYDROCHLORIDE. [Suspect]
     Active Substance: CEFEPIME HYDROCHLORIDE
     Dosage: UNK
     Route: 065
     Dates: start: 20210328, end: 20210330
  9. CIPROFLOXACINE [CIPROFLOXACIN] [Suspect]
     Active Substance: CIPROFLOXACIN
     Indication: ANTIBIOTIC PROPHYLAXIS
     Dosage: 400 MG, 1X/DAY
     Route: 042
     Dates: start: 20210402, end: 20210406
  10. FLUDROCORTISONE [Suspect]
     Active Substance: FLUDROCORTISONE
     Dosage: UNK
     Route: 065
     Dates: start: 20210414, end: 20210418
  11. VANCOMYCIN [Suspect]
     Active Substance: VANCOMYCIN
     Dosage: UNK
     Route: 065
     Dates: start: 20210414, end: 20210415
  12. AMOXICILLINE [AMOXICILLIN TRIHYDRATE] [Suspect]
     Active Substance: AMOXICILLIN
     Dosage: 3 G, 1X/DAY
     Route: 065
     Dates: start: 20210415, end: 20210422
  13. MIDAZOLAM MALEATE [Suspect]
     Active Substance: MIDAZOLAM MALEATE
     Dosage: UNK
     Route: 065
     Dates: start: 20210401, end: 20210418
  14. AMOXICILLINE [AMOXICILLIN TRIHYDRATE] [Suspect]
     Active Substance: AMOXICILLIN
     Indication: ANTIBIOTIC PROPHYLAXIS
     Dosage: UNK UNK, 1X/DAY
     Route: 065
     Dates: start: 20210316, end: 20210322
  15. ATRACURIUM BESILATE [Suspect]
     Active Substance: ATRACURIUM BESYLATE
     Dosage: UNK
     Route: 065
     Dates: start: 20210413, end: 20210414
  16. IOMERON [Suspect]
     Active Substance: IOMEPROL
     Indication: COMPUTERISED TOMOGRAM
     Dosage: UNK
     Route: 042
     Dates: start: 20210420, end: 20210420
  17. SUFENTANIL [SUFENTANIL CITRATE] [Suspect]
     Active Substance: SUFENTANIL CITRATE
     Indication: SEDATION
     Dosage: 0.5 ML (PER HOUR)
     Route: 042
     Dates: start: 20210401
  18. MEROPENEM. [Suspect]
     Active Substance: MEROPENEM
     Indication: ANTIBIOTIC PROPHYLAXIS
     Dosage: 1 G, 1X/DAY
     Route: 042
     Dates: start: 20210401, end: 20210402
  19. IOMERON [Suspect]
     Active Substance: IOMEPROL
     Indication: COMPUTERISED TOMOGRAM
  20. INSULIN PORCINE [Suspect]
     Active Substance: INSULIN PORK\INSULIN PURIFIED PORK
     Indication: INSULIN THERAPY
     Dosage: 100 IU/ML (AS PER BLOOD GLUCOSE)
     Route: 058
     Dates: start: 20210406, end: 20210409
  21. ERTAPENEM [ERTAPENEM SODIUM] [Suspect]
     Active Substance: ERTAPENEM SODIUM
     Indication: ANTIBIOTIC PROPHYLAXIS
     Dosage: UNK
     Route: 042
     Dates: start: 20210331, end: 20210331

REACTIONS (5)
  - Acute kidney injury [Unknown]
  - Rash morbilliform [Recovering/Resolving]
  - Drug reaction with eosinophilia and systemic symptoms [Recovering/Resolving]
  - Septic shock [Unknown]
  - Thrombocytopenia [Recovered/Resolved]

NARRATIVE: CASE EVENT DATE: 20210403
